FAERS Safety Report 20042835 (Version 1)
Quarter: 2021Q4

REPORT INFORMATION
  Report Type: Other
  Country: US (occurrence: None)
  Receive Date: 20211108
  Receipt Date: 20211108
  Transmission Date: 20220303
  Serious: Yes (Other)
  Sender: FDA-Public Use
  Company Number: US-ROCHE-2947373

PATIENT

DRUGS (25)
  1. BEVACIZUMAB [Suspect]
     Active Substance: BEVACIZUMAB
     Indication: Age-related macular degeneration
     Route: 050
  2. BEVACIZUMAB [Suspect]
     Active Substance: BEVACIZUMAB
     Indication: Diabetic retinal oedema
  3. BEVACIZUMAB [Suspect]
     Active Substance: BEVACIZUMAB
     Indication: Retinal vein occlusion
  4. BEVACIZUMAB [Suspect]
     Active Substance: BEVACIZUMAB
     Indication: Cystoid macular oedema
  5. BEVACIZUMAB [Suspect]
     Active Substance: BEVACIZUMAB
     Indication: Uveitis
  6. AFLIBERCEPT [Suspect]
     Active Substance: AFLIBERCEPT
     Indication: Age-related macular degeneration
     Route: 050
  7. AFLIBERCEPT [Suspect]
     Active Substance: AFLIBERCEPT
     Indication: Diabetic retinal oedema
  8. AFLIBERCEPT [Suspect]
     Active Substance: AFLIBERCEPT
     Indication: Retinal vein occlusion
  9. AFLIBERCEPT [Suspect]
     Active Substance: AFLIBERCEPT
     Indication: Cystoid macular oedema
  10. AFLIBERCEPT [Suspect]
     Active Substance: AFLIBERCEPT
     Indication: Uveitis
  11. RANIBIZUMAB [Suspect]
     Active Substance: RANIBIZUMAB
     Indication: Age-related macular degeneration
     Route: 065
  12. RANIBIZUMAB [Suspect]
     Active Substance: RANIBIZUMAB
     Indication: Diabetic retinal oedema
  13. RANIBIZUMAB [Suspect]
     Active Substance: RANIBIZUMAB
     Indication: Retinal vein occlusion
  14. RANIBIZUMAB [Suspect]
     Active Substance: RANIBIZUMAB
     Indication: Cystoid macular oedema
  15. RANIBIZUMAB [Suspect]
     Active Substance: RANIBIZUMAB
     Indication: Uveitis
  16. DEXAMETHASONE [Suspect]
     Active Substance: DEXAMETHASONE
     Indication: Age-related macular degeneration
     Route: 065
  17. DEXAMETHASONE [Suspect]
     Active Substance: DEXAMETHASONE
     Indication: Diabetic retinal oedema
  18. DEXAMETHASONE [Suspect]
     Active Substance: DEXAMETHASONE
     Indication: Retinal vein occlusion
  19. DEXAMETHASONE [Suspect]
     Active Substance: DEXAMETHASONE
     Indication: Cystoid macular oedema
  20. DEXAMETHASONE [Suspect]
     Active Substance: DEXAMETHASONE
     Indication: Uveitis
  21. TRIAMCINOLONE [Suspect]
     Active Substance: TRIAMCINOLONE
     Indication: Age-related macular degeneration
     Route: 065
  22. TRIAMCINOLONE [Suspect]
     Active Substance: TRIAMCINOLONE
     Indication: Diabetic retinal oedema
  23. TRIAMCINOLONE [Suspect]
     Active Substance: TRIAMCINOLONE
     Indication: Retinal vein occlusion
  24. TRIAMCINOLONE [Suspect]
     Active Substance: TRIAMCINOLONE
     Indication: Cystoid macular oedema
  25. TRIAMCINOLONE [Suspect]
     Active Substance: TRIAMCINOLONE
     Indication: Uveitis

REACTIONS (5)
  - Endophthalmitis [Recovered/Resolved]
  - Retinal detachment [Unknown]
  - Suspected transmission of an infectious agent via product [Unknown]
  - Off label use [Unknown]
  - Off label use [Unknown]
